FAERS Safety Report 5678666-8 (Version None)
Quarter: 2008Q1

REPORT INFORMATION
  Report Type: 
  Country: None (occurrence: None)
  Receive Date: 20080320
  Receipt Date: 20080310
  Transmission Date: 20080703
  Serious: Yes (Hospitalization)
  Sender: FDA-Public Use
  Company Number: 2008-01784

PATIENT
  Age: 44 Year
  Sex: Female
  Weight: 97.8 kg

DRUGS (19)
  1. PREDNISONE TAB [Suspect]
     Indication: DRUG USE FOR UNKNOWN INDICATION
     Dosage: ORAL
     Route: 048
     Dates: start: 20071118
  2. VORICONAZOLE(VORICONAZOLE) [Suspect]
     Indication: INFECTION PROPHYLAXIS
     Dosage: 200 MG, BID, ORAL
     Route: 048
     Dates: start: 20061116
  3. MYCOPHENOLATE MOFETIL [Concomitant]
  4. TACROLIMUS [Concomitant]
  5. RABEPRAZOLE SODIUM [Concomitant]
  6. ACYCLOVIR [Concomitant]
  7. NIFEDIPINE [Concomitant]
  8. MAGNESIUM (MAGNESIUM) [Concomitant]
  9. RESTAS (FLUTOPRAZEPAM) [Concomitant]
  10. PREDNISILONE ACETATE [Concomitant]
  11. LASIX [Concomitant]
  12. ALL OTHER THERAPEUTIC PRODUCTS [Concomitant]
  13. NOVORAPID (INSULIN ASPART) [Concomitant]
  14. NPH INSULIN (INSULIN INJECTION, ISOPHANE) [Concomitant]
  15. VANCOMYCIN [Concomitant]
  16. DAPSONE [Concomitant]
  17. POTASSIUM (POTASSIUM) [Concomitant]
  18. ATIVAN [Concomitant]
  19. MAGNESIUM SULFATE [Concomitant]

REACTIONS (4)
  - GRAFT VERSUS HOST DISEASE [None]
  - HERPES SIMPLEX [None]
  - LOBAR PNEUMONIA [None]
  - MUCOSAL INFLAMMATION [None]
